FAERS Safety Report 16700097 (Version 2)
Quarter: 2019Q3

REPORT INFORMATION
  Report Type: Report from Study
  Country: None (occurrence: US)
  Receive Date: 20190813
  Receipt Date: 20190826
  Transmission Date: 20191004
  Serious: Yes (Hospitalization, Other)
  Sender: FDA-Public Use
  Company Number: US-ABBVIE-19K-163-2880654-00

PATIENT
  Age: 63 Year
  Sex: Female
  Weight: 53.57 kg

DRUGS (3)
  1. HUMIRA [Suspect]
     Active Substance: ADALIMUMAB
     Indication: RHEUMATOID ARTHRITIS
     Route: 058
     Dates: start: 2011, end: 2016
  2. HUMIRA [Suspect]
     Active Substance: ADALIMUMAB
     Route: 058
     Dates: start: 2018
  3. RITUXAN [Suspect]
     Active Substance: RITUXIMAB
     Indication: PRODUCT USED FOR UNKNOWN INDICATION
     Route: 065
     Dates: start: 2017, end: 201804

REACTIONS (23)
  - Tooth fracture [Not Recovered/Not Resolved]
  - Fall [Recovered/Resolved]
  - Scratch [Not Recovered/Not Resolved]
  - Dizziness [Recovering/Resolving]
  - Facial bones fracture [Recovering/Resolving]
  - Cerebral haemorrhage [Recovered/Resolved]
  - Arthralgia [Recovered/Resolved]
  - Inflammation [Recovering/Resolving]
  - Radius fracture [Recovering/Resolving]
  - Contusion [Not Recovered/Not Resolved]
  - Abdominal distension [Recovering/Resolving]
  - Glaucoma [Not Recovered/Not Resolved]
  - Balance disorder [Not Recovered/Not Resolved]
  - Oral discomfort [Not Recovered/Not Resolved]
  - Macular hole [Not Recovered/Not Resolved]
  - Ear disorder [Not Recovered/Not Resolved]
  - Nausea [Recovered/Resolved]
  - Confusional state [Recovered/Resolved]
  - Nerve injury [Not Recovered/Not Resolved]
  - Adhesion [Not Recovered/Not Resolved]
  - Dental restoration failure [Not Recovered/Not Resolved]
  - Vitiligo [Not Recovered/Not Resolved]
  - Balance disorder [Recovered/Resolved]

NARRATIVE: CASE EVENT DATE: 2017
